FAERS Safety Report 16757064 (Version 1)
Quarter: 2019Q3

REPORT INFORMATION
  Report Type: Spontaneous
  Country: US (occurrence: US)
  Receive Date: 20190829
  Receipt Date: 20190829
  Transmission Date: 20191005
  Serious: Yes (Other)
  Sender: FDA-Public Use
  Company Number: US-CELGENEUS-USA-20190809308

PATIENT
  Sex: Male

DRUGS (1)
  1. OTEZLA [Suspect]
     Active Substance: APREMILAST
     Indication: NEOPLASM SKIN
     Dosage: 60 MILLIGRAM
     Route: 048
     Dates: start: 20161020

REACTIONS (1)
  - Prostatic disorder [Unknown]
